FAERS Safety Report 20308659 (Version 1)
Quarter: 2022Q1

REPORT INFORMATION
  Report Type: Spontaneous
  Country: US (occurrence: None)
  Receive Date: 20220106
  Receipt Date: 20220106
  Transmission Date: 20220423
  Serious: Yes (Other)
  Sender: FDA-Public Use
  Company Number: None

PATIENT
  Age: 74 Year
  Sex: Female

DRUGS (3)
  1. RETEVMO [Suspect]
     Active Substance: SELPERCATINIB
     Indication: Lung neoplasm malignant
     Dosage: TAKE 2 CAPSULES (160 MG) BY MOUTH TWICE DAILY. DO NO TAKE FIRST DOSE UNTIL DIRECTED BY CLINICAL TEAM
     Route: 048
     Dates: start: 20211215
  2. OXYCODONE [Suspect]
     Active Substance: OXYCODONE
  3. TYLENOL [Concomitant]
     Active Substance: ACETAMINOPHEN

REACTIONS (1)
  - Bone cancer [None]

NARRATIVE: CASE EVENT DATE: 20211227
